FAERS Safety Report 25779123 (Version 1)
Quarter: 2025Q3

REPORT INFORMATION
  Report Type: Spontaneous
  Country: US (occurrence: None)
  Receive Date: 20250909
  Receipt Date: 20250909
  Transmission Date: 20251020
  Serious: Yes (Hospitalization)
  Sender: FDA-CTU
  Company Number: None

PATIENT
  Age: 53 Year
  Sex: Male
  Weight: 155.1 kg

DRUGS (1)
  1. CISPLATIN [Suspect]
     Active Substance: CISPLATIN
     Dates: end: 20250508

REACTIONS (13)
  - Incision site discharge [None]
  - Erythema [None]
  - Lymphoedema [None]
  - Wound [None]
  - Post procedural complication [None]
  - Abscess [None]
  - Oedema peripheral [None]
  - Soft tissue infection [None]
  - Scrotal pain [None]
  - Peripheral swelling [None]
  - Scrotal oedema [None]
  - Cellulitis [None]
  - Device dislocation [None]

NARRATIVE: CASE EVENT DATE: 20250820
